FAERS Safety Report 15678387 (Version 1)
Quarter: 2018Q4

REPORT INFORMATION
  Report Type: Spontaneous
  Country: US (occurrence: US)
  Receive Date: 20181201
  Receipt Date: 20181201
  Transmission Date: 20190205
  Serious: No
  Sender: FDA-Public Use
  Company Number: US-PFIZER INC-2017110383

PATIENT
  Age: 4 Year
  Sex: Male

DRUGS (4)
  1. GENOTROPIN [Suspect]
     Active Substance: SOMATROPIN
     Dosage: 0.3 MG, DAILY
     Dates: start: 20170114
  2. GENOTROPIN [Suspect]
     Active Substance: SOMATROPIN
     Dosage: 0.7 MG, DAILY
  3. GENOTROPIN [Suspect]
     Active Substance: SOMATROPIN
     Dosage: 0.5 MG, UNK (ON ODD CALENDAR DAYS)
     Dates: start: 20170114
  4. GENOTROPIN [Suspect]
     Active Substance: SOMATROPIN
     Dosage: 0.6 MG, UNK (INJECT 0.6MG  ON EVEN CALENDAR DAYS)
     Dates: start: 20170114

REACTIONS (6)
  - Lymphocyte count increased [Unknown]
  - White blood cell count increased [Unknown]
  - Blood urea nitrogen/creatinine ratio increased [Unknown]
  - Product dose omission [Unknown]
  - Eosinophil count increased [Unknown]
  - Blood chloride increased [Unknown]

NARRATIVE: CASE EVENT DATE: 20171003
